FAERS Safety Report 24054412 (Version 1)
Quarter: 2024Q3

REPORT INFORMATION
  Report Type: Spontaneous
  Country: CH (occurrence: CH)
  Receive Date: 20240705
  Receipt Date: 20240705
  Transmission Date: 20241016
  Serious: Yes (Other)
  Sender: RANBAXY
  Company Number: CH-SUN PHARMACEUTICAL INDUSTRIES LTD-2024R1-454720

PATIENT
  Age: 80 Year
  Sex: Female

DRUGS (3)
  1. ACYCLOVIR [Suspect]
     Active Substance: ACYCLOVIR
     Indication: Varicella zoster virus infection
     Dosage: UNK
     Route: 051
  2. GABAPENTIN [Suspect]
     Active Substance: GABAPENTIN
     Indication: Varicella zoster virus infection
     Dosage: UNK
     Route: 065
  3. ZINC OXIDE [Suspect]
     Active Substance: ZINC OXIDE
     Indication: Varicella zoster virus infection
     Dosage: UNK
     Route: 061

REACTIONS (3)
  - Encephalomyelitis [Recovering/Resolving]
  - Myoclonus [Recovering/Resolving]
  - Muscle rigidity [Recovering/Resolving]
